FAERS Safety Report 6553687-1 (Version None)
Quarter: 2010Q1

REPORT INFORMATION
  Report Type: 
  Country: None (occurrence: None)
  Receive Date: 20100125
  Receipt Date: 20100125
  Transmission Date: 20100710
  Serious: Yes (Other)
  Sender: FDA-Public Use
  Company Number: None

PATIENT
  Sex: Female
  Weight: 61.6892 kg

DRUGS (1)
  1. OMEPRAZOLE (PRISOLEC) [Suspect]
     Indication: GASTROOESOPHAGEAL REFLUX DISEASE
     Dosage: 20 MG (1 CAPSULE) 2 X DAILY ORAL - 1/2 HR. BEFORE EATING BREAKFAST AND DINNER
     Dates: start: 20080101, end: 20081102

REACTIONS (4)
  - ABNORMAL FAECES [None]
  - COLONOSCOPY ABNORMAL [None]
  - GASTROINTESTINAL DISORDER [None]
  - NO THERAPEUTIC RESPONSE [None]
